FAERS Safety Report 25628937 (Version 1)
Quarter: 2025Q3

REPORT INFORMATION
  Report Type: Report from Study
  Country: US (occurrence: US)
  Receive Date: 20250731
  Receipt Date: 20250731
  Transmission Date: 20251021
  Serious: Yes (Other)
  Sender: MALLINCKRODT
  Company Number: US-MALLINCKRODT-MNK202500513

PATIENT
  Age: 72 Year
  Sex: Female

DRUGS (9)
  1. CORTICOTROPIN [Suspect]
     Active Substance: CORTICOTROPIN
     Indication: Rheumatoid arthritis
     Dosage: 80 UNITS
  2. CORTICOTROPIN [Suspect]
     Active Substance: CORTICOTROPIN
     Dosage: 40 UNITS (DOSE REDUCED)
     Route: 058
  3. SOLU-MEDROL [Concomitant]
     Active Substance: METHYLPREDNISOLONE SODIUM SUCCINATE
  4. HEPARIN [Concomitant]
     Active Substance: HEPARIN SODIUM
  5. SODIUM CHLORIDE [Concomitant]
     Active Substance: SODIUM CHLORIDE
  6. CIMZIA [Concomitant]
     Active Substance: CERTOLIZUMAB PEGOL
  7. TOPAZ [Concomitant]
  8. KLONOPIN [Concomitant]
     Active Substance: CLONAZEPAM
  9. KLONOPIN [Concomitant]
     Active Substance: CLONAZEPAM

REACTIONS (11)
  - Multiple sclerosis [Unknown]
  - COVID-19 [Unknown]
  - Extrasystoles [Unknown]
  - Gait inability [Unknown]
  - Abdominal discomfort [Recovered/Resolved]
  - Chills [Unknown]
  - Palpitations [Recovered/Resolved]
  - Insomnia [Not Recovered/Not Resolved]
  - Feeling hot [Unknown]
  - Muscular weakness [Unknown]
  - Therapeutic response shortened [Unknown]
